FAERS Safety Report 13102965 (Version 2)
Quarter: 2017Q1

REPORT INFORMATION
  Report Type: Spontaneous
  Country: US (occurrence: US)
  Receive Date: 20170110
  Receipt Date: 20170118
  Transmission Date: 20170428
  Serious: Yes (Other)
  Sender: FDA-Public Use
  Company Number: US-CELGENEUS-USA-2017011452

PATIENT
  Sex: Female

DRUGS (1)
  1. OTEZLA [Suspect]
     Active Substance: APREMILAST
     Indication: PSORIASIS
     Dosage: 10MG,20MG,30MG
     Route: 048

REACTIONS (3)
  - Influenza like illness [Not Recovered/Not Resolved]
  - Ear pain [Not Recovered/Not Resolved]
  - Diarrhoea [Not Recovered/Not Resolved]
